FAERS Safety Report 19188023 (Version 1)
Quarter: 2021Q2

REPORT INFORMATION
  Report Type: Spontaneous
  Country: US (occurrence: US)
  Receive Date: 20210427
  Receipt Date: 20210427
  Transmission Date: 20210717
  Serious: No
  Sender: FDA-Public Use
  Company Number: US-FRESENIUS KABI-FK202104289

PATIENT
  Age: 58 Year
  Sex: Male
  Weight: 108 kg

DRUGS (1)
  1. HEPARIN SODIUM INJECTION, USP [Suspect]
     Active Substance: HEPARIN SODIUM
     Indication: CARDIAC ABLATION
     Dosage: DRIP TITRATED TO 1200 UNITS/HR OVER ABOUT 28 MINUTES; A TOTAL OF 24,000 UNIT BOLUSES GIVEN
     Route: 065
     Dates: start: 20210421, end: 20210421

REACTIONS (1)
  - Drug effect less than expected [Recovered/Resolved]

NARRATIVE: CASE EVENT DATE: 20210421
